FAERS Safety Report 5238375-6 (Version None)
Quarter: 2007Q1

REPORT INFORMATION
  Report Type: 
  Country: None (occurrence: None)
  Receive Date: 20070215
  Receipt Date: 20070207
  Transmission Date: 20070707
  Serious: Yes (Death, Hospitalization)
  Sender: FDA-Public Use
  Company Number: US-ROCHE-468299

PATIENT
  Age: 17 Year
  Sex: Male
  Weight: 76.7 kg

DRUGS (1)
  1. ACCUTANE [Suspect]
     Indication: ACNE
     Route: 048
     Dates: start: 19960605, end: 19960915

REACTIONS (4)
  - BIPOLAR I DISORDER [None]
  - COMPLETED SUICIDE [None]
  - DIARRHOEA [None]
  - STREPTOCOCCAL ABSCESS [None]
